FAERS Safety Report 6904423-8 (Version None)
Quarter: 2010Q3

REPORT INFORMATION
  Report Type: 
  Country: None (occurrence: None)
  Receive Date: 20100804
  Receipt Date: 20090522
  Transmission Date: 20110219
  Serious: No
  Sender: FDA-Public Use
  Company Number: US-PFIZER INC-2009218730

PATIENT
  Sex: Female
  Weight: 58.957 kg

DRUGS (5)
  1. LYRICA [Suspect]
     Indication: PARAESTHESIA
     Dosage: 50 MG, 2X/DAY
     Route: 048
     Dates: start: 20090518, end: 20090520
  2. LYRICA [Suspect]
     Indication: PAIN
  3. FLEXERIL [Concomitant]
     Dosage: UNK
  4. AMITRIPTYLINE [Concomitant]
     Dosage: UNK
  5. MOBIC [Concomitant]
     Dosage: UNK

REACTIONS (2)
  - PAIN [None]
  - PARAESTHESIA [None]
